FAERS Safety Report 23091888 (Version 2)
Quarter: 2024Q1

REPORT INFORMATION
  Report Type: Report from Study
  Country: US (occurrence: US)
  Receive Date: 20231020
  Receipt Date: 20240106
  Transmission Date: 20240409
  Serious: Yes (Death, Hospitalization)
  Sender: FDA-Public Use
  Company Number: US-ABBVIE-5458449

PATIENT
  Age: 86 Year
  Sex: Male

DRUGS (5)
  1. SYNTHROID [Suspect]
     Active Substance: LEVOTHYROXINE SODIUM
     Indication: Hypothyroidism
     Dosage: FORM STRENGTH: 88 UG
     Route: 048
     Dates: start: 201902, end: 2022
  2. LASIX [Concomitant]
     Active Substance: FUROSEMIDE
     Indication: Product used for unknown indication
  3. NADOLOL [Concomitant]
     Active Substance: NADOLOL
     Indication: Product used for unknown indication
  4. ACYCLOVIR [Concomitant]
     Active Substance: ACYCLOVIR
     Indication: Product used for unknown indication
  5. XIFAXAN [Concomitant]
     Active Substance: RIFAXIMIN
     Indication: Product used for unknown indication

REACTIONS (2)
  - Myocardial infarction [Fatal]
  - Blood disorder [Not Recovered/Not Resolved]

NARRATIVE: CASE EVENT DATE: 20221219
